FAERS Safety Report 14972679 (Version 2)
Quarter: 2018Q2

REPORT INFORMATION
  Report Type: Spontaneous
  Country: US (occurrence: US)
  Receive Date: 20180605
  Receipt Date: 20180620
  Transmission Date: 20180711
  Serious: No
  Sender: FDA-Public Use
  Company Number: US-PFIZER INC-2018226957

PATIENT
  Age: 71 Year
  Sex: Male

DRUGS (3)
  1. LYRICA [Suspect]
     Active Substance: PREGABALIN
     Indication: BURNING SENSATION
     Dosage: 150 MG, 2X/DAY (MORNING AND EVENING )
     Dates: start: 2013
  2. OXYCONTIN [Concomitant]
     Active Substance: OXYCODONE HYDROCHLORIDE
     Indication: ARTHRITIS
     Dosage: 40 MG, 2X/DAY
     Dates: start: 2002
  3. OXYCONTIN [Concomitant]
     Active Substance: OXYCODONE HYDROCHLORIDE
     Indication: PAIN

REACTIONS (3)
  - Drug effect incomplete [Unknown]
  - Aphonia [Recovered/Resolved]
  - Nasopharyngitis [Unknown]
